FAERS Safety Report 13497690 (Version 2)
Quarter: 2017Q3

REPORT INFORMATION
  Report Type: Spontaneous
  Country: JP (occurrence: JP)
  Receive Date: 20170501
  Receipt Date: 20170719
  Transmission Date: 20171127
  Serious: Yes (Other)
  Sender: FDA-Public Use
  Company Number: JP-ROCHE-1926760

PATIENT
  Age: 84 Year
  Sex: Female
  Weight: 48 kg

DRUGS (7)
  1. BONVIVA [Suspect]
     Active Substance: IBANDRONATE SODIUM
     Indication: OSTEOPOROSIS
     Dosage: ON 01/JUN/2016, MOST RECENT DOSE OF IBANDRONATE SODIUM.
     Route: 042
  2. CARBIDOPA/LEVODOPA [Concomitant]
     Active Substance: CARBIDOPA\LEVODOPA
     Route: 065
  3. FAMOTIDINE. [Concomitant]
     Active Substance: FAMOTIDINE
     Route: 065
     Dates: start: 20120319
  4. ENALAPRIL [Concomitant]
     Active Substance: ENALAPRIL
     Dosage: DOSAGE IS UNCERTAIN.
     Route: 065
     Dates: start: 20141001
  5. TERIBONE [Concomitant]
     Active Substance: TERIPARATIDE ACETATE
     Route: 065
     Dates: start: 20120609, end: 20161115
  6. AMANTADINE HYDROCHLORIDE. [Concomitant]
     Active Substance: AMANTADINE HYDROCHLORIDE
     Dosage: DOSAGE IS UNCERTAIN.
     Route: 065
  7. POLAPREZINC [Concomitant]
     Active Substance: POLAPREZINC
     Dosage: DOSAGE IS UNCERTAIN.
     Route: 065
     Dates: start: 20120319

REACTIONS (1)
  - Osteonecrosis of external auditory canal [Recovering/Resolving]

NARRATIVE: CASE EVENT DATE: 20160618
